FAERS Safety Report 16012042 (Version 2)
Quarter: 2019Q2

REPORT INFORMATION
  Report Type: Spontaneous
  Country: JP (occurrence: JP)
  Receive Date: 20190227
  Receipt Date: 20190516
  Transmission Date: 20190711
  Serious: Yes (Other)
  Sender: FDA-Public Use
  Company Number: JP-AMGEN-JPNSP2019030877

PATIENT
  Age: 78 Year
  Sex: Female

DRUGS (1)
  1. ENBREL [Suspect]
     Active Substance: ETANERCEPT
     Indication: RHEUMATOID ARTHRITIS
     Dosage: UNK UNK, QD (50 UNK)
     Route: 058
     Dates: end: 20190105

REACTIONS (2)
  - Arthralgia [Not Recovered/Not Resolved]
  - Lymphocyte count abnormal [Unknown]

NARRATIVE: CASE EVENT DATE: 20190105
